FAERS Safety Report 14661633 (Version 1)
Quarter: 2018Q1

REPORT INFORMATION
  Report Type: Spontaneous
  Country: US (occurrence: US)
  Receive Date: 20180320
  Receipt Date: 20180320
  Transmission Date: 20180509
  Serious: No
  Sender: FDA-Public Use
  Company Number: US-009507513-1803USA005937

PATIENT
  Age: 66 Year
  Sex: Female

DRUGS (1)
  1. COZAAR [Suspect]
     Active Substance: LOSARTAN POTASSIUM
     Indication: HYPERTENSION
     Dosage: ONE TABLET, DAILY
     Route: 048
     Dates: start: 20180312

REACTIONS (3)
  - Swollen tongue [Recovering/Resolving]
  - Intentional underdose [Unknown]
  - Tongue pruritus [Recovering/Resolving]

NARRATIVE: CASE EVENT DATE: 201803
